FAERS Safety Report 9685824 (Version 3)
Quarter: 2013Q4

REPORT INFORMATION
  Report Type: Spontaneous
  Country: US (occurrence: US)
  Receive Date: 20131113
  Receipt Date: 20131202
  Transmission Date: 20140711
  Serious: Yes (Other)
  Sender: FDA-Public Use
  Company Number: US-PFIZER INC-2013324184

PATIENT
  Age: 41 Year
  Sex: Male
  Weight: 146.3 kg

DRUGS (15)
  1. CHANTIX [Suspect]
     Indication: SMOKING CESSATION THERAPY
     Dosage: 0.5 MG, 1X/DAY
     Route: 048
     Dates: start: 20130725, end: 201309
  2. ADVAIR DISKUS [Concomitant]
     Dosage: 250 MCG- 50 MCG ONE TIME BY MOUTH TWICE PER DAY
     Route: 055
     Dates: start: 20130725
  3. ALBUTEROL SULFATE [Concomitant]
     Dosage: 3 ML (2.5MG), BY NEBULIZATION ROUTE 3 TIMES
     Dates: start: 20130805
  4. CLARITIN [Concomitant]
     Dosage: 10 MG, 1X/DAY
     Route: 048
     Dates: start: 20130111
  5. FLONASE [Concomitant]
     Dosage: 50 UG, 2X/DAY
     Route: 045
     Dates: start: 20130725
  6. LISINOPRIL [Concomitant]
     Dosage: 10 MG, 1X/DAY
     Route: 048
     Dates: start: 20130725
  7. MEVACOR [Concomitant]
     Dosage: 20 MG, 1X/DAY
     Route: 048
     Dates: start: 20130725
  8. NIASPAN [Concomitant]
     Dosage: 500 MG 4 TABLETS Q.H.S.
     Route: 048
     Dates: start: 20130702
  9. PRO-AIR [Concomitant]
     Dosage: INHALE 1 BY PUFF EVERY 4 HRS AS NEEDED ROUTE
     Dates: start: 20130819
  10. PROTONIX [Concomitant]
     Dosage: 40 MG, 2X/DAY
     Route: 048
     Dates: start: 20130712, end: 2013
  11. PROTONIX [Concomitant]
     Dosage: 40 MG, 2X/DAY
     Route: 048
     Dates: start: 20131011
  12. VIAGRA [Concomitant]
     Indication: SEXUAL ACTIVITY INCREASED
     Dosage: 50 MG, EVERY DAY AS NEEDDE APPROX 1 HOUR BEFORE SEXUAL ACTIVITY
     Route: 048
     Dates: start: 20130621
  13. HYDROCHLOROTHIAZIDE [Concomitant]
     Dosage: 25 MG, 1X/DAY
     Route: 048
     Dates: start: 20130725
  14. LOTRISONE [Concomitant]
     Dosage: UNK
     Route: 061
     Dates: start: 20120406
  15. TRICOR [Concomitant]
     Dosage: 145 MG, 1X/DAY
     Route: 048
     Dates: start: 20130725

REACTIONS (11)
  - Weight increased [Unknown]
  - Nervous system disorder [Not Recovered/Not Resolved]
  - Feeling abnormal [Not Recovered/Not Resolved]
  - Dizziness [Not Recovered/Not Resolved]
  - Lip disorder [Unknown]
  - Mental disorder [Unknown]
  - Musculoskeletal pain [Unknown]
  - Feeling abnormal [Unknown]
  - Abdominal discomfort [Unknown]
  - Gastrooesophageal reflux disease [Unknown]
  - Amylase increased [Unknown]
